FAERS Safety Report 24782992 (Version 1)
Quarter: 2024Q4

REPORT INFORMATION
  Report Type: Spontaneous
  Country: BE (occurrence: BE)
  Receive Date: 20241227
  Receipt Date: 20241227
  Transmission Date: 20250114
  Serious: Yes (Other)
  Sender: JOHNSON AND JOHNSON
  Company Number: BE-JNJFOC-20241260982

PATIENT
  Age: 15 Year
  Sex: Male

DRUGS (1)
  1. RISPERIDONE [Suspect]
     Active Substance: RISPERIDONE
     Indication: Product used for unknown indication
     Dosage: DOSE 0.33 PIECE(S); ONCE; INTERVAL: 15 MIN AGO
     Route: 048

REACTIONS (1)
  - Intentional self-injury [Unknown]
